FAERS Safety Report 7062515-X (Version None)
Quarter: 2010Q4

REPORT INFORMATION
  Report Type: 
  Country: None (occurrence: None)
  Receive Date: 20101026
  Receipt Date: 20091109
  Transmission Date: 20110411
  Serious: No
  Sender: FDA-Public Use
  Company Number: US-PFIZER INC-2009297609

PATIENT
  Sex: Male
  Weight: 102 kg

DRUGS (10)
  1. LIPITOR [Suspect]
     Indication: BLOOD CHOLESTEROL INCREASED
  2. METOPROLOL [Concomitant]
  3. HYDROCHLOROTHIAZIDE [Concomitant]
  4. VERAPAMIL [Concomitant]
  5. AMLODIPINE [Concomitant]
  6. ALLOPURINOL [Concomitant]
  7. TAMSULOSIN [Concomitant]
  8. ACETYLSALICYLIC ACID [Concomitant]
  9. CITRACAL [Concomitant]
  10. METHIMAZOLE [Concomitant]

REACTIONS (6)
  - BLOOD CHOLESTEROL INCREASED [None]
  - MUSCULAR WEAKNESS [None]
  - MUSCULOSKELETAL PAIN [None]
  - MYALGIA [None]
  - NECK PAIN [None]
  - ROTATOR CUFF SYNDROME [None]
